FAERS Safety Report 25208019 (Version 1)
Quarter: 2025Q2

REPORT INFORMATION
  Report Type: Spontaneous
  Country: US (occurrence: US)
  Receive Date: 20250417
  Receipt Date: 20250417
  Transmission Date: 20250716
  Serious: Yes (Death, Other)
  Sender: IPSEN
  Company Number: US-IPSEN Group, Research and Development-2025-08701

PATIENT
  Sex: Male

DRUGS (1)
  1. ONIVYDE [Suspect]
     Active Substance: IRINOTECAN HYDROCHLORIDE
     Indication: Product used for unknown indication
     Dosage: FREQUENCY: ONCE EVERY TWO WEEKS
     Route: 065
     Dates: start: 20241203, end: 20250205

REACTIONS (5)
  - Death [Fatal]
  - Vomiting [Unknown]
  - Blood potassium decreased [Unknown]
  - Nausea [Unknown]
  - Product dose omission issue [Unknown]
